FAERS Safety Report 26204351 (Version 1)
Quarter: 2025Q4

REPORT INFORMATION
  Report Type: Spontaneous
  Country: US (occurrence: US)
  Receive Date: 20251226
  Receipt Date: 20251226
  Transmission Date: 20260118
  Serious: No
  Sender: BAYER HEALTHCARE LLC
  Company Number: US-BAYER-2025A168344

PATIENT
  Age: 79 Year
  Sex: Male

DRUGS (2)
  1. MIRALAX [Suspect]
     Active Substance: POLYETHYLENE GLYCOL 3350
     Dosage: UNK,1 CAP FULL EVERYDAY THEN CHANGE TO 1 OR 2 DOSE A DAY
     Route: 048
  2. MILK OF MAGNESIA ORIGINAL [Suspect]
     Active Substance: MAGNESIUM HYDROXIDE
     Dosage: UNK,60ML X TWICE IN A WEEK EVERY NIGHT OF WED AND SUN
     Route: 048

REACTIONS (2)
  - Incorrect product administration duration [None]
  - Inappropriate schedule of product administration [None]
